FAERS Safety Report 12678415 (Version 3)
Quarter: 2017Q1

REPORT INFORMATION
  Report Type: Spontaneous
  Country: JP (occurrence: JP)
  Receive Date: 20160823
  Receipt Date: 20170206
  Transmission Date: 20170428
  Serious: Yes (Hospitalization, Other)
  Sender: FDA-Public Use
  Company Number: JP-MYLANLABS-2016M1034936

PATIENT

DRUGS (6)
  1. CARBOPLATIN MYLAN [Suspect]
     Active Substance: CARBOPLATIN
     Dosage: 750 MG, UNK
     Route: 041
     Dates: start: 20160725
  2. FEXOFENADINE [Concomitant]
     Active Substance: FEXOFENADINE\FEXOFENADINE HYDROCHLORIDE
     Indication: PREMEDICATION
     Dosage: UNK
     Route: 048
     Dates: start: 20160725
  3. GRAN [Suspect]
     Active Substance: FILGRASTIM
     Indication: NEUTROPENIA
     Dosage: 75 ?G, UNK
     Route: 058
     Dates: start: 20160809, end: 20160809
  4. PACLITAXEL. [Concomitant]
     Active Substance: PACLITAXEL
     Indication: UTERINE CANCER
     Dosage: 300 MG, CYCLE
     Route: 041
     Dates: start: 20160630
  5. CARBOPLATIN MYLAN [Suspect]
     Active Substance: CARBOPLATIN
     Indication: UTERINE CANCER
     Dosage: 800 MG, CYCLE
     Route: 041
     Dates: start: 20160630
  6. DEXART [Concomitant]
     Active Substance: DEXAMETHASONE SODIUM PHOSPHATE
     Indication: PREMEDICATION
     Dosage: UNK
     Route: 065
     Dates: start: 20160725

REACTIONS (4)
  - Aortitis [Recovered/Resolved]
  - Hepatic function abnormal [Recovered/Resolved]
  - Neutropenia [Unknown]
  - Urticaria [Unknown]

NARRATIVE: CASE EVENT DATE: 20160707
